FAERS Safety Report 19818498 (Version 4)
Quarter: 2021Q4

REPORT INFORMATION
  Report Type: Spontaneous
  Country: BB (occurrence: BB)
  Receive Date: 20210911
  Receipt Date: 20211225
  Transmission Date: 20220303
  Serious: Yes (Life-Threatening, Other)
  Sender: FDA-Public Use
  Company Number: BB-NOVARTISPH-NVSC2021BB201783

PATIENT
  Sex: Female
  Weight: 44.6 kg

DRUGS (4)
  1. NEORAL [Suspect]
     Active Substance: CYCLOSPORINE
     Indication: Prophylaxis against transplant rejection
     Dosage: 25 MG, BID
     Route: 048
     Dates: start: 19920228
  2. NEORAL [Suspect]
     Active Substance: CYCLOSPORINE
     Indication: Renal transplant
     Dosage: 25 MG, BID (END OF AUG 2021)
     Route: 048
     Dates: end: 20210816
  3. NEORAL [Suspect]
     Active Substance: CYCLOSPORINE
     Indication: Immunosuppressant drug therapy
  4. AZATHIOPRINE [Suspect]
     Active Substance: AZATHIOPRINE
     Indication: Product used for unknown indication
     Dosage: 100 MG, UNKNOWN
     Route: 065
     Dates: start: 199202, end: 202110

REACTIONS (12)
  - Cardiomegaly [Unknown]
  - Uterine leiomyoma [Not Recovered/Not Resolved]
  - Hydronephrosis [Unknown]
  - End stage renal disease [Unknown]
  - Renal failure [Unknown]
  - Renal impairment [Unknown]
  - Uterine enlargement [Unknown]
  - Cervical cyst [Unknown]
  - Weight decreased [Unknown]
  - Illness [Unknown]
  - General physical health deterioration [Not Recovered/Not Resolved]
  - Hypertension [Unknown]
